FAERS Safety Report 10218727 (Version 1)
Quarter: 2014Q2

REPORT INFORMATION
  Report Type: Report from Study
  Country: JP (occurrence: JP)
  Receive Date: 20140605
  Receipt Date: 20140605
  Transmission Date: 20141212
  Serious: Yes (Other)
  Sender: FDA-Public Use
  Company Number: PHHY2014JP067491

PATIENT
  Age: 36 Year
  Sex: Male

DRUGS (49)
  1. LEPONEX / CLOZARIL [Suspect]
     Indication: SCHIZOPHRENIA, DISORGANISED TYPE
     Dosage: 12.5 MG, UNK
     Route: 048
     Dates: start: 20111109, end: 20111109
  2. LEPONEX / CLOZARIL [Suspect]
     Dosage: 25 MG, UNK
     Route: 048
     Dates: start: 20111110, end: 20111112
  3. LEPONEX / CLOZARIL [Suspect]
     Dosage: 50 MG, UNK
     Route: 048
     Dates: start: 20111113, end: 20111115
  4. LEPONEX / CLOZARIL [Suspect]
     Dosage: 75 MG, UNK
     Route: 048
     Dates: start: 20111116, end: 20111117
  5. LEPONEX / CLOZARIL [Suspect]
     Dosage: 100 MG, UNK
     Route: 048
     Dates: start: 20111118, end: 20111119
  6. LEPONEX / CLOZARIL [Suspect]
     Dosage: 125 MG, UNK
     Route: 048
     Dates: start: 20111120, end: 20111122
  7. LEPONEX / CLOZARIL [Suspect]
     Dosage: 150 MG, UNK
     Route: 048
     Dates: start: 20111123, end: 20111125
  8. LEPONEX / CLOZARIL [Suspect]
     Dosage: 175 MG, UNK
     Route: 048
     Dates: start: 20111126, end: 20111128
  9. LEPONEX / CLOZARIL [Suspect]
     Dosage: 200 MG, UNK
     Route: 048
     Dates: start: 20111129, end: 20111129
  10. LEPONEX / CLOZARIL [Suspect]
     Dosage: 225 MG, UNK
     Route: 048
     Dates: start: 20111130, end: 20111203
  11. LEPONEX / CLOZARIL [Suspect]
     Dosage: 250 MG, UNK
     Route: 048
     Dates: start: 20111204, end: 20111206
  12. LEPONEX / CLOZARIL [Suspect]
     Dosage: 275 MG, UNK
     Route: 048
     Dates: start: 20111207, end: 20111210
  13. LEPONEX / CLOZARIL [Suspect]
     Dosage: 300 MG, UNK
     Route: 048
     Dates: start: 20111211, end: 20120413
  14. LEPONEX / CLOZARIL [Suspect]
     Dosage: 275 MG, UNK
     Route: 048
     Dates: start: 20120414, end: 20120420
  15. LEPONEX / CLOZARIL [Suspect]
     Dosage: 300 MG, UNK
     Route: 048
     Dates: start: 20120421, end: 20130712
  16. LEPONEX / CLOZARIL [Suspect]
     Dosage: 400 MG, UNK
     Route: 048
     Dates: start: 20130713, end: 20130813
  17. LEPONEX / CLOZARIL [Suspect]
     Dosage: 350 MG, UNK
     Route: 048
     Dates: start: 20130814, end: 20130903
  18. LEPONEX / CLOZARIL [Suspect]
     Dosage: 325 MG, UNK
     Route: 048
     Dates: start: 20130904
  19. YOKUKANSAN [Concomitant]
     Indication: SCHIZOPHRENIA, DISORGANISED TYPE
     Dosage: 3 DF, UNK
     Route: 048
     Dates: start: 20111108
  20. YOKUKANSAN [Concomitant]
     Dosage: 2 DF, UNK
     Route: 048
  21. YOKUKANSAN [Concomitant]
     Dosage: 1 DF, UNK
     Route: 048
     Dates: end: 20130708
  22. LIMAS [Concomitant]
     Indication: SCHIZOPHRENIA, DISORGANISED TYPE
     Dosage: 1200 MG, UNK
     Route: 048
     Dates: start: 20111108
  23. LIMAS [Concomitant]
     Dosage: 600 MG, UNK
     Route: 048
  24. LIMAS [Concomitant]
     Dosage: 400 MG, UNK
     Route: 048
  25. LIMAS [Concomitant]
     Dosage: 200 MG, UNK
     Route: 048
  26. PANTOSIN [Concomitant]
     Dosage: 600 MG, UNK
     Route: 048
     Dates: start: 20111108
  27. PANTOSIN [Concomitant]
     Dosage: 400 MG, UNK
     Route: 048
  28. PANTOSIN [Concomitant]
     Dosage: 200 MG, UNK
     Route: 048
  29. SILECE [Concomitant]
     Indication: SCHIZOPHRENIA, DISORGANISED TYPE
     Dosage: 2 MG, UNK
     Route: 048
     Dates: start: 20111108
  30. SILECE [Concomitant]
     Dosage: 4 MG, UNK
     Route: 048
  31. SILECE [Concomitant]
     Dosage: 2 MG, UNK
     Route: 048
     Dates: end: 20121224
  32. BENZALIN [Concomitant]
     Indication: SCHIZOPHRENIA, DISORGANISED TYPE
     Dosage: 20 MG, UNK
     Route: 048
     Dates: start: 20111108
  33. BENZALIN [Concomitant]
     Dosage: 15 MG, UNK
     Route: 048
  34. BENZALIN [Concomitant]
     Dosage: 10 MG, UNK
     Route: 048
  35. BENZALIN [Concomitant]
     Dosage: 5 MG, UNK
     Route: 048
  36. BENZALIN [Concomitant]
     Dosage: 2.5 MG, UNK
     Route: 048
  37. BENZALIN [Concomitant]
     Dosage: 5 MG, UNK
     Route: 048
  38. BENZALIN [Concomitant]
     Dosage: 10 MG, UNK
     Route: 048
  39. BENZALIN [Concomitant]
     Dosage: 15 MG, UNK
     Route: 048
  40. RIVOTRIL [Concomitant]
     Indication: EXTRAPYRAMIDAL DISORDER
     Dosage: 4 MG, UNK
     Route: 048
     Dates: start: 20111108
  41. RIVOTRIL [Concomitant]
     Dosage: 2 MG, UNK
     Route: 048
  42. RIVOTRIL [Concomitant]
     Dosage: 3 MG, UNK
     Route: 048
  43. RIVOTRIL [Concomitant]
     Dosage: 2 MG, UNK
     Route: 048
  44. NAUZELIN [Concomitant]
     Dosage: 10 MG, UNK
     Dates: start: 20111108
  45. SELBEX [Concomitant]
     Dosage: 50 MG, UNK
     Route: 048
     Dates: start: 20111108
  46. LENDORMIN [Concomitant]
     Indication: SCHIZOPHRENIA, DISORGANISED TYPE
     Dosage: 0.25 MG, UNK
     Route: 048
     Dates: start: 20120202
  47. LENDORMIN [Concomitant]
     Dosage: 0.25 MG, UNK
     Route: 048
  48. WYPAX [Concomitant]
     Indication: SCHIZOPHRENIA, DISORGANISED TYPE
     Dosage: 1 MG, UNK
     Route: 048
     Dates: start: 20120202
  49. AKINETON//BIPERIDEN HYDROCHLORIDE [Concomitant]
     Indication: PROPHYLAXIS
     Dosage: 2 MG, UNK
     Route: 048
     Dates: start: 20120315, end: 20120430

REACTIONS (1)
  - Hepatic function abnormal [Recovered/Resolved]
